FAERS Safety Report 8270056-7 (Version None)
Quarter: 2012Q1

REPORT INFORMATION
  Report Type: 
  Country: None (occurrence: None)
  Receive Date: 20120327
  Receipt Date: 20090828
  Transmission Date: 20120608
  Serious: Yes (Other)
  Sender: FDA-Public Use
  Company Number: PHEH2009US09631

PATIENT
  Age: 67 Year
  Sex: Female

DRUGS (15)
  1. GLEEVEC [Suspect]
     Indication: CHRONIC MYELOID LEUKAEMIA
     Dosage: 400 MG, DAILY, ORAL
     Route: 048
     Dates: start: 20090126, end: 20090727
  2. JANUVIA [Concomitant]
  3. LASIX [Concomitant]
  4. K-DUR (SITAGLIPTIN PHOSPHATE) [Concomitant]
  5. GLIPIZIDE [Concomitant]
  6. MACROBID [Concomitant]
  7. LOTREL [Concomitant]
  8. AUGMENTIN /SCH/ (AMOXICILLIN SODIUM, CLAVULANATE POTASSIUIM) [Concomitant]
  9. EFFEXOR XR [Concomitant]
  10. LEVOXYL [Concomitant]
  11. LYRICA [Concomitant]
  12. METFORMIN HCL [Concomitant]
  13. MIRAPEX ^BOEHRINGER INGELHEIM^ (PRAMIPREXOLE DIHYDROCHLORIDE) [Concomitant]
  14. INDAPAMIDE [Concomitant]
  15. VYTORIN [Concomitant]

REACTIONS (5)
  - BLISTER [None]
  - RASH ERYTHEMATOUS [None]
  - SKIN ULCER [None]
  - STEVENS-JOHNSON SYNDROME [None]
  - DERMATITIS BULLOUS [None]
